FAERS Safety Report 8210096-7 (Version None)
Quarter: 2012Q1

REPORT INFORMATION
  Report Type: 
  Country: None (occurrence: None)
  Receive Date: 20120314
  Receipt Date: 20110721
  Transmission Date: 20120608
  Serious: No
  Sender: FDA-Public Use
  Company Number: US-ASTRAZENECA-2011SE44291

PATIENT
  Sex: Female

DRUGS (8)
  1. METOPROLOL SUCCINATE [Suspect]
     Dosage: TWO TABLETS BY MOUTH DAILY
     Route: 048
  2. ZONISAMIDE [Concomitant]
  3. SERTRALINE HYDROCHLORIDE [Concomitant]
  4. BONIVA [Concomitant]
  5. LAMOTRIGINE [Concomitant]
  6. SIMVASTATIN [Concomitant]
  7. CLONAZEPAM [Concomitant]
  8. AMOXICILLIN AND CLAVULANATE POTASSIUM [Concomitant]

REACTIONS (1)
  - PAIN [None]
